FAERS Safety Report 9833181 (Version 1)
Quarter: 2014Q1

REPORT INFORMATION
  Report Type: Report from Study
  Country: US (occurrence: US)
  Receive Date: 20140121
  Receipt Date: 20140121
  Transmission Date: 20141002
  Serious: Yes (Other)
  Sender: FDA-Public Use
  Company Number: US-ABBVIE-14P-163-1189118-00

PATIENT
  Age: 35 Year
  Sex: Male

DRUGS (6)
  1. HUMIRA [Suspect]
     Indication: CROHN^S DISEASE
     Route: 058
     Dates: end: 201311
  2. HUMIRA [Suspect]
     Dosage: 160MG DAY 0, 80MG DAY 15
     Route: 058
     Dates: start: 20140114, end: 20140114
  3. DEPAKOTE [Suspect]
     Indication: CONVULSION
     Dosage: DOSE INCREASED
  4. DEPAKOTE [Suspect]
  5. FLAGYL [Concomitant]
     Indication: PRODUCT USED FOR UNKNOWN INDICATION
  6. PREDNISONE [Concomitant]
     Indication: PRODUCT USED FOR UNKNOWN INDICATION

REACTIONS (11)
  - Anticonvulsant drug level decreased [Recovered/Resolved]
  - Convulsion [Recovered/Resolved]
  - Hypoaesthesia [Not Recovered/Not Resolved]
  - Unevaluable event [Not Recovered/Not Resolved]
  - Brain neoplasm [Not Recovered/Not Resolved]
  - Paraesthesia [Not Recovered/Not Resolved]
  - Crohn^s disease [Unknown]
  - Vomiting [Recovered/Resolved]
  - Diarrhoea [Recovered/Resolved]
  - Excoriation [Recovered/Resolved]
  - Limb injury [Recovered/Resolved]
